FAERS Safety Report 10617879 (Version 5)
Quarter: 2015Q1

REPORT INFORMATION
  Report Type: Report from Study
  Country: AU (occurrence: AU)
  Receive Date: 20141201
  Receipt Date: 20150217
  Transmission Date: 20150720
  Serious: Yes (Hospitalization, Other)
  Sender: FDA-Public Use
  Company Number: PHHY2014AU134853

PATIENT
  Age: 79 Year
  Sex: Female

DRUGS (1)
  1. SANDOSTATIN LAR DEPOT [Suspect]
     Active Substance: OCTREOTIDE ACETATE
     Indication: CARCINOID SYNDROME
     Dosage: 10 MG
     Route: 030

REACTIONS (13)
  - Dysstasia [Recovering/Resolving]
  - Groin pain [Recovering/Resolving]
  - Stress [Recovering/Resolving]
  - Arthralgia [Recovering/Resolving]
  - Vomiting [Not Recovered/Not Resolved]
  - Amnesia [Unknown]
  - Osteoporosis [Unknown]
  - Pollakiuria [Recovered/Resolved]
  - Abdominal pain lower [Not Recovered/Not Resolved]
  - Bursitis [Recovering/Resolving]
  - Pain in extremity [Recovering/Resolving]
  - Underdose [Unknown]
  - Lethargy [Not Recovered/Not Resolved]

NARRATIVE: CASE EVENT DATE: 20141025
